FAERS Safety Report 6758755-7 (Version None)
Quarter: 2010Q2

REPORT INFORMATION
  Report Type: 
  Country: None (occurrence: None)
  Receive Date: 20100607
  Receipt Date: 20100528
  Transmission Date: 20101027
  Serious: Yes (Other)
  Sender: FDA-Public Use
  Company Number: US-AMGEN-QUU415273

PATIENT
  Sex: Female

DRUGS (1)
  1. ENBREL [Suspect]
     Indication: RHEUMATOID ARTHRITIS
     Route: 058
     Dates: start: 20080101

REACTIONS (7)
  - ABDOMINAL PAIN [None]
  - GALLBLADDER DISORDER [None]
  - GASTROINTESTINAL FUNGAL INFECTION [None]
  - IMPAIRED GASTRIC EMPTYING [None]
  - NAUSEA [None]
  - PNEUMONIA ASPIRATION [None]
  - RESPIRATORY TRACT INFECTION FUNGAL [None]
